FAERS Safety Report 4870074-2 (Version None)
Quarter: 2005Q4

REPORT INFORMATION
  Report Type: 
  Country: None (occurrence: None)
  Receive Date: 20051223
  Receipt Date: 20051214
  Transmission Date: 20060501
  Serious: Yes (Hospitalization)
  Sender: FDA-Public Use
  Company Number: 2005BI020515

PATIENT
  Age: 66 Year
  Sex: Female

DRUGS (15)
  1. AVONEX [Suspect]
     Indication: MULTIPLE SCLEROSIS
     Dosage: IM
     Route: 030
     Dates: start: 20050401
  2. XANAX [Concomitant]
  3. AMITRIPTYLINE HCL [Concomitant]
  4. PREDNISONE [Concomitant]
  5. COMBIVENT [Concomitant]
  6. ADVAIR DISKUS 250/50 [Concomitant]
  7. VICOPROFEN [Concomitant]
  8. SENOKOT [Concomitant]
  9. SYNTHROID [Concomitant]
  10. PRAVACHOL [Concomitant]
  11. DITROPAN [Concomitant]
  12. PLAVIX [Concomitant]
  13. ISORBIDE [Concomitant]
  14. CAPTOPRIL [Concomitant]
  15. MOM [Concomitant]

REACTIONS (1)
  - NO ADVERSE DRUG EFFECT [None]
